FAERS Safety Report 4323271-9 (Version None)
Quarter: 2004Q1

REPORT INFORMATION
  Report Type: 
  Country: None (occurrence: None)
  Receive Date: 20040323
  Receipt Date: 20040114
  Transmission Date: 20041129
  Serious: No
  Sender: FDA-Public Use
  Company Number: M04-341-012

PATIENT

DRUGS (1)
  1. VELCADE [Suspect]
     Dosage: UNKNOWN INFUSION: INTRAVENOUS DRIP
     Route: 041

REACTIONS (1)
  - MYOCARDIAL INFARCTION [None]
